FAERS Safety Report 10588681 (Version 11)
Quarter: 2015Q3

REPORT INFORMATION
  Report Type: Spontaneous
  Country: US (occurrence: US)
  Receive Date: 20141117
  Receipt Date: 20150928
  Transmission Date: 20151125
  Serious: Yes (Hospitalization, Other)
  Sender: FDA-Public Use
  Company Number: US-GLAXOSMITHKLINE-A1062900A

PATIENT
  Age: 75 Year
  Sex: Female

DRUGS (4)
  1. PROMACTA [Suspect]
     Active Substance: ELTROMBOPAG OLAMINE
     Dosage: 25 MG, QOD
     Route: 048
     Dates: start: 20110526
  2. PROMACTA [Suspect]
     Active Substance: ELTROMBOPAG OLAMINE
     Dosage: 25 MG, QOD
     Dates: start: 20140526
  3. PROMACTA [Suspect]
     Active Substance: ELTROMBOPAG OLAMINE
     Indication: THROMBOCYTOPENIA
     Dosage: 25 MG, QOD
     Dates: start: 20110524
  4. PROMACTA [Suspect]
     Active Substance: ELTROMBOPAG OLAMINE
     Indication: APLASTIC ANAEMIA
     Dosage: 25 MG, QD
     Route: 048

REACTIONS (45)
  - Platelet count decreased [Unknown]
  - Oral mucosal exfoliation [Unknown]
  - Skin ulcer [Unknown]
  - Bladder pain [Unknown]
  - Insomnia [Unknown]
  - Hospitalisation [Unknown]
  - Depression [Unknown]
  - Rhinalgia [Not Recovered/Not Resolved]
  - Gastrointestinal disorder [Unknown]
  - Drug dose omission [Unknown]
  - Limb discomfort [Unknown]
  - Abdominal distension [Unknown]
  - Ear pain [Not Recovered/Not Resolved]
  - Bladder dilatation [Unknown]
  - Cardiac disorder [Unknown]
  - Rash [Unknown]
  - Urticaria [Unknown]
  - Rhinorrhoea [Unknown]
  - Musculoskeletal pain [Unknown]
  - Pain [Unknown]
  - Pruritus [Unknown]
  - Infection [Unknown]
  - Varicose vein [Unknown]
  - Road traffic accident [Unknown]
  - Pyrexia [Unknown]
  - Sneezing [Unknown]
  - Neck pain [Unknown]
  - Nausea [Unknown]
  - Blister [Unknown]
  - Rash [Unknown]
  - Hernia [Unknown]
  - Temporomandibular joint syndrome [Unknown]
  - Dizziness [Unknown]
  - Burning sensation [Unknown]
  - Chest pain [Unknown]
  - Feeling abnormal [Unknown]
  - Alopecia [Unknown]
  - Myalgia [Unknown]
  - Headache [Not Recovered/Not Resolved]
  - Burning sensation [Unknown]
  - Abdominal pain upper [Unknown]
  - Ill-defined disorder [Unknown]
  - Chills [Unknown]
  - Constipation [Unknown]
  - Jaw disorder [Unknown]

NARRATIVE: CASE EVENT DATE: 201407
